FAERS Safety Report 8780560 (Version 4)
Quarter: 2012Q4

REPORT INFORMATION
  Report Type: 
  Country: US (occurrence: US)
  Receive Date: 20120913
  Receipt Date: 20121129
  Transmission Date: 20130627
  Serious: No
  Sender: FDA-Public Use
  Company Number: US-PFIZER INC-2012225192

PATIENT
  Sex: Male

DRUGS (5)
  1. NEURONTIN [Suspect]
     Dosage: UNK
  2. NEURONTIN [Suspect]
     Dosage: 20 mg,  DAILY
  3. NEURONTIN [Suspect]
     Dosage: 1600 mg, 2x/day
  4. LYRICA [Suspect]
     Dosage: UNK
  5. VIAGRA [Suspect]
     Dosage: UNK

REACTIONS (1)
  - Liver disorder [Unknown]
